FAERS Safety Report 8581281-X (Version None)
Quarter: 2012Q3

REPORT INFORMATION
  Report Type: 
  Country: None (occurrence: None)
  Receive Date: 20120809
  Receipt Date: 20120731
  Transmission Date: 20120928
  Serious: Yes (Hospitalization)
  Sender: FDA-Public Use
  Company Number: US-BAYER-2012-078942

PATIENT
  Age: 36 Year
  Sex: Female
  Weight: 61.224 kg

DRUGS (5)
  1. CONTRACEPTIVES NOS [Concomitant]
  2. PENICILLIN [Concomitant]
  3. YAZ [Suspect]
     Indication: CONTRACEPTION
  4. TETANUS VACCINE [TETANUS VACCINE] [Concomitant]
  5. KEFLEX [Concomitant]

REACTIONS (2)
  - PULMONARY EMBOLISM [None]
  - THROMBOPHLEBITIS SUPERFICIAL [None]
